FAERS Safety Report 9689951 (Version 1)
Quarter: 2013Q4

REPORT INFORMATION
  Report Type: Spontaneous
  Country: US (occurrence: US)
  Receive Date: 20131115
  Receipt Date: 20131115
  Transmission Date: 20140711
  Serious: Yes (Death)
  Sender: FDA-Public Use
  Company Number: US-PFIZER INC-2013324797

PATIENT
  Age: 58 Year
  Sex: Male

DRUGS (1)
  1. CAMPTOSAR [Suspect]
     Indication: CHOLANGIOCARCINOMA
     Dosage: 370 MG, EVERY TWO WEEKS
     Dates: start: 20121002

REACTIONS (3)
  - Disease progression [Fatal]
  - Cholangiocarcinoma [Fatal]
  - Off label use [Unknown]
